FAERS Safety Report 7176313-X (Version None)
Quarter: 2010Q4

REPORT INFORMATION
  Report Type: 
  Country: None (occurrence: None)
  Receive Date: 20101220
  Receipt Date: 20101210
  Transmission Date: 20110411
  Serious: Yes (Other)
  Sender: FDA-Public Use
  Company Number: US-PFIZER INC-2010171352

PATIENT
  Age: 17 Year
  Sex: Female
  Weight: 49 kg

DRUGS (4)
  1. SERTRALINE HYDROCHLORIDE [Suspect]
     Indication: DEPRESSION
     Dosage: 100 MG, 1X/DAY
     Route: 048
     Dates: start: 20100101
  2. SERTRALINE HYDROCHLORIDE [Suspect]
     Dosage: 50 MG FOR ONE DAY
  3. SERTRALINE HYDROCHLORIDE [Suspect]
     Dosage: 75 MG THE NEXT DAY
  4. CALCIUM CITRATE [Concomitant]

REACTIONS (2)
  - DEPRESSION [None]
  - INCORRECT DOSE ADMINISTERED [None]
